FAERS Safety Report 12853664 (Version 1)
Quarter: 2016Q4

REPORT INFORMATION
  Report Type: Spontaneous
  Country: ES (occurrence: ES)
  Receive Date: 20161017
  Receipt Date: 20161017
  Transmission Date: 20170207
  Serious: Yes (Other)
  Sender: FDA-Public Use
  Company Number: ES-009507513-1609ESP014319

PATIENT
  Sex: Female

DRUGS (1)
  1. ORGALUTRAN [Suspect]
     Active Substance: GANIRELIX ACETATE
     Indication: REPRODUCTIVE HORMONE
     Dosage: UNK
     Route: 058

REACTIONS (4)
  - Tongue oedema [Recovered/Resolved]
  - Swelling face [Recovered/Resolved]
  - Erythema [Recovered/Resolved]
  - Respiratory distress [Recovered/Resolved]
